FAERS Safety Report 7825885-8 (Version None)
Quarter: 2011Q4

REPORT INFORMATION
  Report Type: 
  Country: None (occurrence: None)
  Receive Date: 20111019
  Receipt Date: 20111009
  Transmission Date: 20120403
  Serious: Yes (Other)
  Sender: FDA-Public Use
  Company Number: DZ-ROCHE-1003308

PATIENT
  Age: 16 Year
  Sex: Female
  Weight: 34 kg

DRUGS (1)
  1. MABTHERA [Suspect]
     Indication: SYSTEMIC LUPUS ERYTHEMATOSUS
     Route: 042

REACTIONS (4)
  - RENAL IMPAIRMENT [None]
  - OFF LABEL USE [None]
  - SYSTEMIC LUPUS ERYTHEMATOSUS [None]
  - DRUG INEFFECTIVE [None]
